FAERS Safety Report 14187640 (Version 2)
Quarter: 2017Q4

REPORT INFORMATION
  Report Type: Spontaneous
  Country: NZ (occurrence: NZ)
  Receive Date: 20171114
  Receipt Date: 20171120
  Transmission Date: 20180321
  Serious: Yes (Hospitalization)
  Sender: FDA-Public Use
  Company Number: NZ-KADMON PHARMACEUTICALS, LLC-KAD-201711-01029

PATIENT
  Sex: Male
  Weight: 118 kg

DRUGS (2)
  1. RIBAVIRIN. [Suspect]
     Active Substance: RIBAVIRIN
     Indication: HEPATITIS C
     Dosage: TABLET
     Dates: start: 20171013, end: 20171025
  2. VIEKIRA PAK [Suspect]
     Active Substance: DASABUVIR\OMBITASVIR\PARITAPREVIR\RITONAVIR
     Indication: HEPATITIS C
     Dosage: TABLET
     Route: 048
     Dates: start: 20171013, end: 20171025

REACTIONS (4)
  - Jaundice [Recovering/Resolving]
  - Encephalopathy [Recovering/Resolving]
  - Liver disorder [Recovering/Resolving]
  - Lethargy [Recovering/Resolving]
